FAERS Safety Report 16937562 (Version 1)
Quarter: 2019Q4

REPORT INFORMATION
  Report Type: Spontaneous
  Country: US (occurrence: US)
  Receive Date: 20191018
  Receipt Date: 20191018
  Transmission Date: 20200122
  Serious: Yes (Other)
  Sender: FDA-Public Use
  Company Number: US-ASTRAZENECA-2019SF46167

PATIENT
  Age: 54 Year
  Sex: Male
  Weight: 131.5 kg

DRUGS (2)
  1. BYETTA [Suspect]
     Active Substance: EXENATIDE
     Indication: TYPE 2 DIABETES MELLITUS
     Route: 065
     Dates: start: 200503, end: 20180712
  2. BYDUREON [Suspect]
     Active Substance: EXENATIDE
     Indication: TYPE 2 DIABETES MELLITUS
     Route: 065
     Dates: start: 20180713

REACTIONS (17)
  - Short-bowel syndrome [Unknown]
  - Skin atrophy [Unknown]
  - Glycosylated haemoglobin increased [Unknown]
  - Colon cancer [Unknown]
  - Nausea [Unknown]
  - Skin erosion [Unknown]
  - Malaise [Unknown]
  - Musculoskeletal discomfort [Unknown]
  - Product dose omission [Unknown]
  - Fatigue [Unknown]
  - Pain [Unknown]
  - Contusion [Unknown]
  - Memory impairment [Unknown]
  - Product use issue [Unknown]
  - Blood blister [Unknown]
  - Abdominal discomfort [Unknown]
  - Gait disturbance [Unknown]

NARRATIVE: CASE EVENT DATE: 2010
